FAERS Safety Report 19474728 (Version 1)
Quarter: 2021Q2

REPORT INFORMATION
  Report Type: Spontaneous
  Country: US (occurrence: US)
  Receive Date: 20210629
  Receipt Date: 20210629
  Transmission Date: 20210717
  Serious: Yes (Other)
  Sender: FDA-Public Use
  Company Number: US-CUMBERLAND-2021-US-000019

PATIENT
  Age: 55 Year
  Sex: Male

DRUGS (2)
  1. REDITREX [Suspect]
     Active Substance: METHOTREXATE
  2. INFLIXIMAB [Suspect]
     Active Substance: INFLIXIMAB

REACTIONS (3)
  - Weight decreased [Unknown]
  - HIV test positive [Unknown]
  - Lymphopenia [Unknown]
